FAERS Safety Report 8021001-0 (Version None)
Quarter: 2011Q4

REPORT INFORMATION
  Report Type: 
  Country: None (occurrence: None)
  Receive Date: 20111229
  Receipt Date: 20111213
  Transmission Date: 20120403
  Serious: Yes (Death, Other)
  Sender: FDA-Public Use
  Company Number: 2008LY0306

PATIENT
  Sex: Female

DRUGS (1)
  1. ORFADIN [Suspect]
     Indication: TYROSINAEMIA
     Dosage: 1 MG/KG
     Route: 048
     Dates: start: 20040915, end: 20050222

REACTIONS (9)
  - HAEMATEMESIS [None]
  - HAEMORRHAGIC DIATHESIS [None]
  - THROMBOCYTOPENIA [None]
  - VARICES OESOPHAGEAL [None]
  - HEPATIC FAILURE [None]
  - ANAEMIA [None]
  - MELAENA [None]
  - NO THERAPEUTIC RESPONSE [None]
  - DERMATITIS DIAPER [None]
